FAERS Safety Report 9589654 (Version 1)
Quarter: 2013Q4

REPORT INFORMATION
  Report Type: Spontaneous
  Country: US (occurrence: US)
  Receive Date: 20131003
  Receipt Date: 20131003
  Transmission Date: 20140711
  Serious: No
  Sender: FDA-Public Use
  Company Number: US-AMGEN-USASP2012071372

PATIENT
  Age: 68 Year
  Sex: Male

DRUGS (8)
  1. ENBREL [Suspect]
     Indication: PRODUCT USED FOR UNKNOWN INDICATION
     Dosage: 50 MG, QWK
     Route: 058
  2. HYDROXYCHLOROQUINE [Concomitant]
     Dosage: 200 MG, UNK
  3. METHOTREXATE [Concomitant]
     Dosage: 2.5 MG, UNK
  4. PREDNISONE [Concomitant]
     Dosage: 5 MG, UNK
  5. TIMOLOL [Concomitant]
     Dosage: 0.25 %, UNK
  6. LUMIGAN [Concomitant]
     Dosage: 0.01 %, UNK
  7. LEUCOVORIN CA [Concomitant]
     Dosage: 10 MG, UNK
  8. ADVIL                              /00044201/ [Concomitant]
     Dosage: 200 MG, UNK

REACTIONS (2)
  - Prostate infection [Unknown]
  - Drug ineffective [Unknown]
